FAERS Safety Report 8179752-3 (Version None)
Quarter: 2012Q1

REPORT INFORMATION
  Report Type: 
  Country: None (occurrence: None)
  Receive Date: 20120302
  Receipt Date: 20120229
  Transmission Date: 20120608
  Serious: Yes (Hospitalization, Other)
  Sender: FDA-Public Use
  Company Number: US-BAYER-2011-045424

PATIENT
  Age: 46 Year
  Sex: Female
  Weight: 81.633 kg

DRUGS (10)
  1. DROSPIRENONE AND ETHINYL ESTRADIOL [Suspect]
     Indication: MENSTRUAL CYCLE MANAGEMENT
     Dosage: UNK
     Route: 048
     Dates: start: 20081201, end: 20100701
  2. HERBAL PREPARATION [Concomitant]
     Indication: ARTHRITIS
     Dosage: 6 CAPSULES DAILY
     Dates: start: 20100618, end: 20100708
  3. CITALOPRAM HYDROBROMIDE [Concomitant]
     Indication: DEPRESSION
     Dosage: 20 MG, DAILY
     Route: 048
     Dates: start: 20090101, end: 20110101
  4. VITAMIN B COMPLEX CAP [Concomitant]
     Indication: ASTHENIA
     Dosage: 1 TABLET DAILY
     Dates: start: 20100618, end: 20100708
  5. CIMETIDINE [Concomitant]
     Dosage: 1 CAPSULE DAILY
     Route: 048
     Dates: end: 20100708
  6. PREVACID [Concomitant]
     Indication: GASTROOESOPHAGEAL REFLUX DISEASE
     Dosage: 20 MG, DAILY
     Dates: start: 20090101, end: 20110101
  7. MAGNESIUM [Concomitant]
     Indication: CONSTIPATION
     Dosage: 2 CAPSULES, NIGHTLY
     Dates: start: 20100618, end: 20100707
  8. TAGAMET [Concomitant]
  9. LANSOPRAZOLE [Concomitant]
  10. CELEXA [Concomitant]

REACTIONS (10)
  - MYOCARDIAL INFARCTION [None]
  - CEREBROVASCULAR ACCIDENT [None]
  - DEEP VEIN THROMBOSIS [None]
  - ANXIETY [None]
  - ANHEDONIA [None]
  - DEPRESSION [None]
  - PULMONARY EMBOLISM [None]
  - GALLBLADDER DISORDER [None]
  - PAIN [None]
  - FEAR [None]
